FAERS Safety Report 8827921 (Version 1)
Quarter: 2012Q4

REPORT INFORMATION
  Report Type: 
  Country: GB (occurrence: GB)
  Receive Date: 20121008
  Receipt Date: 20121008
  Transmission Date: 20130627
  Serious: Yes (Other)
  Sender: FDA-Public Use
  Company Number: GB-JNJFOC-20120913201

PATIENT
  Sex: Male

DRUGS (4)
  1. REMICADE [Suspect]
     Indication: BEHCET^S SYNDROME
     Route: 042
     Dates: start: 2012
  2. REMICADE [Suspect]
     Indication: UVEITIS
     Route: 042
     Dates: start: 2012
  3. PREDNISONE [Concomitant]
     Route: 065
  4. TOPIRAMATE [Concomitant]
     Route: 065

REACTIONS (2)
  - Neutropenic sepsis [Unknown]
  - Off label use [Unknown]
